FAERS Safety Report 13391348 (Version 2)
Quarter: 2017Q2

REPORT INFORMATION
  Report Type: Spontaneous
  Country: BR (occurrence: BR)
  Receive Date: 20170331
  Receipt Date: 20170421
  Transmission Date: 20170830
  Serious: Yes (Other)
  Sender: FDA-Public Use
  Company Number: BR-PFIZER INC-2016326789

PATIENT
  Age: 76 Year
  Sex: Male

DRUGS (2)
  1. DOSTINEX [Suspect]
     Active Substance: CABERGOLINE
     Indication: BLOOD PROLACTIN INCREASED
     Dosage: 0.5 MG, UNK
     Dates: start: 2016
  2. DOSTINEX [Suspect]
     Active Substance: CABERGOLINE
     Dosage: UNK
     Dates: start: 20170323

REACTIONS (2)
  - Drug ineffective [Not Recovered/Not Resolved]
  - Pituitary tumour [Recovered/Resolved]

NARRATIVE: CASE EVENT DATE: 2016
